FAERS Safety Report 21677863 (Version 1)
Quarter: 2022Q4

REPORT INFORMATION
  Report Type: Spontaneous
  Country: FR (occurrence: FR)
  Receive Date: 20221203
  Receipt Date: 20221203
  Transmission Date: 20230113
  Serious: Yes (Other)
  Sender: FDA-Public Use
  Company Number: None

PATIENT
  Age: 54 Year
  Sex: Male

DRUGS (9)
  1. ALLOPURINOL [Suspect]
     Active Substance: ALLOPURINOL
     Indication: Gouty arthritis
     Dosage: 200 MILLIGRAM DAILY; LONG-TERM TREATMENT
  2. PANTOPRAZOLE [Suspect]
     Active Substance: PANTOPRAZOLE
     Indication: Product used for unknown indication
     Dosage: 20 MILLIGRAM DAILY;  LONG-TERM TREATMENT
  3. MAGNE B6 [Suspect]
     Active Substance: MAGNESIUM\PYRIDOXINE
     Indication: Mineral supplementation
     Dosage: 2 DOSAGE FORMS DAILY; 1 TAB X 2 PER DAY - LONG-TERM TREATMENT
  4. NEORAL [Suspect]
     Active Substance: CYCLOSPORINE
     Indication: Prophylaxis against transplant rejection
     Dosage: 165 MILLIGRAM DAILY; 90 MG IN THE MORNING AND 75 MG IN THE EVENING - LONG-TERM TREATMENT
  5. FILGRASTIM [Suspect]
     Active Substance: FILGRASTIM
     Indication: Transitional cell carcinoma
     Dosage: 165 MILLIGRAM DAILY; 90 MG IN THE MORNING AND 75 MG IN THE EVENING - LONG-TERM TREATMENT, ZARZIO 48
  6. COMIRNATY [Suspect]
     Active Substance: TOZINAMERAN
     Indication: COVID-19 immunisation
     Dosage: R1, COMIRNATY, DISPERSION TO BE DILUTED FOR INJECTION. COVID-19 MRNA VACCINE (MODIFIED NUCLEOSIDE),
     Dates: start: 202104, end: 202104
  7. VALGANCICLOVIR HYDROCHLORIDE [Suspect]
     Active Substance: VALGANCICLOVIR HYDROCHLORIDE
     Indication: Prophylaxis
     Dosage: 450 MILLIGRAM DAILY; STRENGTH: 450 MG,  LONG-TERM TREATMENT
  8. MITOMYCIN [Suspect]
     Active Substance: MITOMYCIN
     Indication: Transitional cell carcinoma
     Dosage: DURATION 3 MONTHS
     Dates: start: 202203, end: 202206
  9. EVUSHELD [Concomitant]
     Active Substance: CILGAVIMAB\TIXAGEVIMAB
     Indication: COVID-19
     Dosage: 1 DF, DURATION 1 DAY
     Dates: start: 20220530, end: 20220530

REACTIONS (1)
  - Neuropathy peripheral [Recovering/Resolving]

NARRATIVE: CASE EVENT DATE: 20220401
